FAERS Safety Report 5092190-5 (Version None)
Quarter: 2006Q3

REPORT INFORMATION
  Report Type: 
  Country: None (occurrence: None)
  Receive Date: 20060828
  Receipt Date: 20060828
  Transmission Date: 20061208
  Serious: Yes (Hospitalization)
  Sender: FDA-Public Use
  Company Number: None

PATIENT
  Sex: Male
  Weight: 91.67 kg

DRUGS (4)
  1. DAUNORUBICIN HCL [Suspect]
     Dosage: 424 MG
     Dates: start: 20060707
  2. L-ASPARAGINASE [Suspect]
     Dosage: 110000 MG
  3. PREDNISONE TAB [Suspect]
     Dosage: 2800 MG
  4. VINCRISTINE SULFATE [Suspect]
     Dosage: 8 MG

REACTIONS (1)
  - BLOOD BILIRUBIN INCREASED [None]
